FAERS Safety Report 12364949 (Version 2)
Quarter: 2016Q2

REPORT INFORMATION
  Report Type: Spontaneous
  Country: FI (occurrence: FI)
  Receive Date: 20160513
  Receipt Date: 20160513
  Transmission Date: 20160815
  Serious: Yes (Life-Threatening)
  Sender: FDA-Public Use
  Company Number: FI-ASTRAZENECA-2016SE50253

PATIENT
  Age: 26607 Day
  Sex: Male

DRUGS (3)
  1. BRILIQUE [Suspect]
     Active Substance: TICAGRELOR
     Route: 048
     Dates: start: 20160421
  2. KLEXANE [Concomitant]
     Active Substance: ENOXAPARIN
     Route: 058
     Dates: start: 20160421
  3. PRIMASPAN [Concomitant]
     Active Substance: ASPIRIN
     Route: 048
     Dates: start: 20160421

REACTIONS (2)
  - Cerebral haemorrhage [Unknown]
  - Hemiplegia [Unknown]

NARRATIVE: CASE EVENT DATE: 20160422
